FAERS Safety Report 17388493 (Version 3)
Quarter: 2020Q4

REPORT INFORMATION
  Report Type: Spontaneous
  Country: US (occurrence: US)
  Receive Date: 20200207
  Receipt Date: 20201027
  Transmission Date: 20210113
  Serious: Yes (Other)
  Sender: FDA-Public Use
  Company Number: US-GILEAD-2020-0450111

PATIENT
  Age: 61 Year
  Sex: Male
  Weight: 72.56 kg

DRUGS (24)
  1. TRUVADA [Suspect]
     Active Substance: EMTRICITABINE\TENOFOVIR DISOPROXIL FUMARATE
     Indication: HIV INFECTION
     Dosage: UNK
     Route: 048
     Dates: start: 201301, end: 201504
  2. ISENTRESS [Concomitant]
     Active Substance: RALTEGRAVIR POTASSIUM
  3. TIVICAY [Concomitant]
     Active Substance: DOLUTEGRAVIR SODIUM
  4. DOXIL [DOXYCYCLINE HYDROCHLORIDE] [Concomitant]
     Active Substance: DOXYCYCLINE HYDROCHLORIDE
  5. CIALIS [Concomitant]
     Active Substance: TADALAFIL
  6. HYDROXYZINE HCL [Concomitant]
     Active Substance: HYDROXYZINE HYDROCHLORIDE
  7. FLUTICASONE. [Concomitant]
     Active Substance: FLUTICASONE
  8. EMTRIVA [Concomitant]
     Active Substance: EMTRICITABINE
  9. NORVIR [Concomitant]
     Active Substance: RITONAVIR
  10. BENAZEPRIL [Concomitant]
     Active Substance: BENAZEPRIL HYDROCHLORIDE
  11. TYLENOL [Concomitant]
     Active Substance: ACETAMINOPHEN
  12. ASPIRIN [ACETYLSALICYLIC ACID] [Concomitant]
     Active Substance: ASPIRIN
  13. PENICILLIN [PENICILLIN NOS] [Concomitant]
     Active Substance: PENICILLIN
  14. TRIAMCINOLONE [Concomitant]
     Active Substance: TRIAMCINOLONE
  15. ATRIPLA [Suspect]
     Active Substance: EFAVIRENZ\EMTRICITABINE\TENOFOVIR DISOPROXIL FUMARATE
     Indication: HIV INFECTION
     Dosage: UNK
     Route: 048
     Dates: start: 201004, end: 201204
  16. PREZISTA [Concomitant]
     Active Substance: DARUNAVIR ETHANOLATE
  17. RITONAVIR. [Concomitant]
     Active Substance: RITONAVIR
  18. ATORVASTATIN [Concomitant]
     Active Substance: ATORVASTATIN
  19. KETOCONAZOLE. [Concomitant]
     Active Substance: KETOCONAZOLE
  20. COMPLERA [Suspect]
     Active Substance: EMTRICITABINE\RILPIVIRINE HYDROCHLORIDE\TENOFOVIR DISOPROXIL FUMARATE
     Indication: HIV INFECTION
     Dosage: UNK
     Route: 048
     Dates: start: 201204, end: 201301
  21. LIPITOR [Concomitant]
     Active Substance: ATORVASTATIN CALCIUM
  22. OMEPRAZOLE. [Concomitant]
     Active Substance: OMEPRAZOLE
  23. NYSTATIN. [Concomitant]
     Active Substance: NYSTATIN
  24. NAFTIFINE. [Concomitant]
     Active Substance: NAFTIFINE HYDROCHLORIDE

REACTIONS (9)
  - Anhedonia [Unknown]
  - Pain [Not Recovered/Not Resolved]
  - Rash [Unknown]
  - Economic problem [Unknown]
  - Depression [Not Recovered/Not Resolved]
  - Renal failure [Unknown]
  - Emotional distress [Not Recovered/Not Resolved]
  - Anxiety [Unknown]
  - Chronic kidney disease [Unknown]

NARRATIVE: CASE EVENT DATE: 201804
